FAERS Safety Report 18464602 (Version 2)
Quarter: 2020Q4

REPORT INFORMATION
  Report Type: Report from Study
  Country: US (occurrence: US)
  Receive Date: 20201104
  Receipt Date: 20201118
  Transmission Date: 20210114
  Serious: Yes (Death, Hospitalization)
  Sender: FDA-Public Use
  Company Number: US-JNJFOC-20201037771

PATIENT
  Age: 63 Year
  Sex: Female

DRUGS (3)
  1. SELEXIPAG [Suspect]
     Active Substance: SELEXIPAG
     Indication: PULMONARY ARTERIAL HYPERTENSION
     Route: 048
     Dates: start: 20200903
  2. OPSUMIT [Suspect]
     Active Substance: MACITENTAN
     Indication: PULMONARY ARTERIAL HYPERTENSION
     Route: 048
     Dates: start: 20190520
  3. SELEXIPAG [Suspect]
     Active Substance: SELEXIPAG
     Route: 048
     Dates: start: 20200902

REACTIONS (6)
  - Flushing [Unknown]
  - Fatigue [Unknown]
  - Diarrhoea [Unknown]
  - Drug titration error [Not Recovered/Not Resolved]
  - Death [Fatal]
  - Nausea [Unknown]
